FAERS Safety Report 4634330-5 (Version None)
Quarter: 2005Q2

REPORT INFORMATION
  Report Type: 
  Country: None (occurrence: None)
  Receive Date: 20050413
  Receipt Date: 20050401
  Transmission Date: 20051028
  Serious: Yes (Other)
  Sender: FDA-Public Use
  Company Number: 106282ISR

PATIENT
  Age: 34 Year
  Sex: Female

DRUGS (2)
  1. GLATIRAMER ACETATE [Suspect]
     Dosage: 20 MILLIGRAM SUBCUTANEOUS
     Route: 058
     Dates: start: 20040414, end: 20050323
  2. GLATIRAMER ACETATE [Suspect]
     Dosage: 20 MILLIGRAM SUBCUTANEOUS
     Route: 058
     Dates: start: 20031201

REACTIONS (5)
  - AGGRESSION [None]
  - DEPRESSION [None]
  - PANIC ATTACK [None]
  - PERSONALITY CHANGE [None]
  - SELF MUTILATION [None]
